FAERS Safety Report 6326256-6 (Version None)
Quarter: 2009Q3

REPORT INFORMATION
  Report Type: 
  Country: None (occurrence: None)
  Receive Date: 20090820
  Receipt Date: 20090813
  Transmission Date: 20100115
  Serious: Yes (Other)
  Sender: FDA-Public Use
  Company Number: 2009SP020254

PATIENT
  Age: 93 Year
  Sex: Male

DRUGS (14)
  1. MIRALAX [Suspect]
     Indication: DRUG USE FOR UNKNOWN INDICATION
     Dosage: BID; PO
     Route: 048
  2. ASPIRIN [Suspect]
     Indication: DRUG USE FOR UNKNOWN INDICATION
  3. NEXIUM [Concomitant]
  4. LASIX [Concomitant]
  5. FLOMAX [Concomitant]
  6. NITROGLYCERIN [Concomitant]
  7. ALPRAZOLAM [Concomitant]
  8. OXYGEN [Concomitant]
  9. IPRATROPIUM BROMIDE [Concomitant]
  10. PULMICORT-100 [Concomitant]
  11. ISOSORBIDE DINITRATE [Concomitant]
  12. CARVEDILOL [Concomitant]
  13. THEOPHYLLINE [Concomitant]
  14. XOPENEX [Concomitant]

REACTIONS (4)
  - ABDOMINAL PAIN LOWER [None]
  - DEFAECATION URGENCY [None]
  - FAECES DISCOLOURED [None]
  - FLATULENCE [None]
